FAERS Safety Report 4551908-8 (Version None)
Quarter: 2005Q1

REPORT INFORMATION
  Report Type: 
  Country: None (occurrence: None)
  Receive Date: 20050110
  Receipt Date: 20050105
  Transmission Date: 20050727
  Serious: Yes (Other)
  Sender: FDA-Public Use
  Company Number: GBWYE316005JAN05

PATIENT

DRUGS (1)
  1. EFFEXOR [Suspect]
     Dosage: 75 MG 1X PER 1 DAY

REACTIONS (2)
  - HEAD INJURY [None]
  - TOURETTE'S DISORDER [None]
